FAERS Safety Report 17561642 (Version 3)
Quarter: 2020Q4

REPORT INFORMATION
  Report Type: Spontaneous
  Country: US (occurrence: US)
  Receive Date: 20200319
  Receipt Date: 20201119
  Transmission Date: 20210113
  Serious: Yes (Hospitalization, Other)
  Sender: FDA-Public Use
  Company Number: US-JNJFOC-20200314098

PATIENT
  Age: 66 Year
  Sex: Male
  Weight: 131.66 kg

DRUGS (1)
  1. REMICADE [Suspect]
     Active Substance: INFLIXIMAB
     Indication: COLITIS ULCERATIVE
     Route: 042
     Dates: start: 20180518, end: 201805

REACTIONS (17)
  - Renal failure [Unknown]
  - Haemoglobin decreased [Unknown]
  - Haematocrit decreased [Unknown]
  - Drug hypersensitivity [Unknown]
  - Bedridden [Unknown]
  - White blood cell count decreased [Unknown]
  - Platelet count decreased [Unknown]
  - Colitis ulcerative [Unknown]
  - Weight fluctuation [Unknown]
  - Skin necrosis [Unknown]
  - Muscle atrophy [Unknown]
  - Feeling abnormal [Unknown]
  - Cardiac disorder [Unknown]
  - Disability [Not Recovered/Not Resolved]
  - Red blood cell count decreased [Unknown]
  - Chemical burn [Unknown]
  - Infection [Unknown]

NARRATIVE: CASE EVENT DATE: 2018
